FAERS Safety Report 8006593-X (Version None)
Quarter: 2011Q4

REPORT INFORMATION
  Report Type: 
  Country: None (occurrence: None)
  Receive Date: 20111227
  Receipt Date: 20111214
  Transmission Date: 20120403
  Serious: Yes (Other)
  Sender: FDA-Public Use
  Company Number: FI-ELI_LILLY_AND_COMPANY-FI201106005848

PATIENT
  Age: 56 Year
  Sex: Female

DRUGS (3)
  1. AZONA [Concomitant]
  2. LEVOZIN [Concomitant]
  3. CYMBALTA [Suspect]
     Indication: DEPRESSION
     Dosage: 120 MG, QD
     Dates: start: 20081020, end: 20090401

REACTIONS (1)
  - HEPATITIS TOXIC [None]
